FAERS Safety Report 7984188-1 (Version None)
Quarter: 2011Q4

REPORT INFORMATION
  Report Type: 
  Country: None (occurrence: None)
  Receive Date: 20111214
  Receipt Date: 20111129
  Transmission Date: 20120403
  Serious: Yes (Hospitalization, Other)
  Sender: FDA-Public Use
  Company Number: UTC-012629

PATIENT
  Age: 36 Year
  Sex: Female
  Weight: 64 kg

DRUGS (1)
  1. REMODULIN [Suspect]
     Indication: PULMONARY ARTERIAL HYPERTENSION
     Dosage: 162.72 UG/KG (0.113 UG/KG,1 IN 1 MIN),SUBCUTANEOUS
     Route: 058
     Dates: start: 20110616

REACTIONS (10)
  - OVERDOSE [None]
  - HEADACHE [None]
  - DYSPNOEA [None]
  - OEDEMA PERIPHERAL [None]
  - PULMONARY ARTERIAL HYPERTENSION [None]
  - CONDITION AGGRAVATED [None]
  - NAUSEA [None]
  - PAIN IN JAW [None]
  - DIARRHOEA [None]
  - PAIN IN EXTREMITY [None]
